FAERS Safety Report 5986703-6 (Version None)
Quarter: 2008Q4

REPORT INFORMATION
  Report Type: 
  Country: None (occurrence: None)
  Receive Date: 20081203
  Receipt Date: 20081127
  Transmission Date: 20090506
  Serious: Yes (Death, Other)
  Sender: FDA-Public Use
  Company Number: 2008JP003610

PATIENT
  Age: 81 Year
  Sex: Female
  Weight: 45 kg

DRUGS (27)
  1. TACROLIMUS [Suspect]
     Indication: MYASTHENIA GRAVIS
     Dosage: 3 MG, /D, ORAL
     Route: 048
     Dates: start: 20041008, end: 20041101
  2. PREDNISOLONE [Suspect]
     Indication: MYASTHENIA GRAVIS
     Dosage: 40 MG, /D, ORAL; 60 MG, QOD ORAL; 50 MG, QOD ORAL
     Route: 048
     Dates: end: 20040910
  3. PREDNISOLONE [Suspect]
     Indication: MYASTHENIA GRAVIS
     Dosage: 40 MG, /D, ORAL; 60 MG, QOD ORAL; 50 MG, QOD ORAL
     Route: 048
     Dates: start: 20040911, end: 20041020
  4. PREDNISOLONE [Suspect]
     Indication: MYASTHENIA GRAVIS
     Dosage: 40 MG, /D, ORAL; 60 MG, QOD ORAL; 50 MG, QOD ORAL
     Route: 048
     Dates: start: 20041025, end: 20041031
  5. PREDNISOLONE [Suspect]
     Indication: MYASTHENIA GRAVIS
     Dosage: 60 MG, QOD, IV NOS; 50 MG, /D, IV NOS; 40 MG, /D, IV NOS
     Route: 042
     Dates: start: 20041021, end: 20041023
  6. PREDNISOLONE [Suspect]
     Indication: MYASTHENIA GRAVIS
     Dosage: 60 MG, QOD, IV NOS; 50 MG, /D, IV NOS; 40 MG, /D, IV NOS
     Route: 042
     Dates: start: 20041024, end: 20041024
  7. PREDNISOLONE [Suspect]
     Indication: MYASTHENIA GRAVIS
     Dosage: 60 MG, QOD, IV NOS; 50 MG, /D, IV NOS; 40 MG, /D, IV NOS
     Route: 042
     Dates: start: 20041101, end: 20041113
  8. MYTELASE [Concomitant]
  9. GASTER D ORODISPERSIBLE CR TABLET [Concomitant]
  10. ALFAROL (ALFACALCIDOL) [Concomitant]
  11. NORVASC [Concomitant]
  12. ADALAT [Concomitant]
  13. ZYLORIC [Concomitant]
  14. CEFAMEZIN (CEFAZOLIN) INJECTION [Concomitant]
  15. ADONA (CARBAZOCHROME SODIUM SULFONATE) INJECTION [Concomitant]
  16. TRANSAMIN (TRANEXAMIC ACID) INJECTION [Concomitant]
  17. BISOLVON (BROMHEXINE HYDROCHLORIDE) INJECTION [Concomitant]
  18. LASIX (FUROSEMIDE) INJECTION [Concomitant]
  19. INOVAN (FLURBIPROFEN) INJECTION [Concomitant]
  20. HEPARIN SODIUM INJECTION [Concomitant]
  21. SOLU-MEDROL [Concomitant]
  22. RISPERDAL [Concomitant]
  23. DOGMATYL [Concomitant]
  24. MEPTIN (PROCATEROL HYDROCHLORIDE) INHALATION [Concomitant]
  25. CEFTAZIDIME [Concomitant]
  26. PRODIF (FOSFLUCONAZOLE) INJECTION [Concomitant]
  27. ZANTAC (RANITIDINE) INJECTION [Concomitant]

REACTIONS (8)
  - CONDITION AGGRAVATED [None]
  - HYPERGLYCAEMIA [None]
  - INTERSTITIAL LUNG DISEASE [None]
  - LYMPHOCYTE COUNT DECREASED [None]
  - POST PROCEDURAL COMPLICATION [None]
  - PULMONARY EMBOLISM [None]
  - RESTLESSNESS [None]
  - THYMECTOMY [None]
